FAERS Safety Report 17461547 (Version 3)
Quarter: 2022Q2

REPORT INFORMATION
  Report Type: Report from Study
  Country: DE (occurrence: DE)
  Receive Date: 20200226
  Receipt Date: 20220415
  Transmission Date: 20220721
  Serious: Yes (Hospitalization, Other)
  Sender: FDA-Public Use
  Company Number: DE-GILEAD-2020-0452354

PATIENT
  Age: 52 Year
  Sex: Male
  Weight: 99 kg

DRUGS (16)
  1. LEDIPASVIR\SOFOSBUVIR [Suspect]
     Active Substance: LEDIPASVIR\SOFOSBUVIR
     Indication: Chronic hepatitis C
     Dosage: 1 DOSAGE FORM, QD
     Route: 048
     Dates: start: 20150311, end: 20150602
  2. PREDNISONE [Concomitant]
     Active Substance: PREDNISONE
  3. HUMIRA [Concomitant]
     Active Substance: ADALIMUMAB
  4. HYDROCORTISONE [Concomitant]
     Active Substance: HYDROCORTISONE
  5. PANTOPRAZOLE [Concomitant]
     Active Substance: PANTOPRAZOLE
  6. PENTASA [Concomitant]
     Active Substance: MESALAMINE
  7. SALBU [SALBUTAMOL] [Concomitant]
  8. CALCIUM\CHOLECALCIFEROL [Concomitant]
     Active Substance: CALCIUM\CHOLECALCIFEROL
  9. VITAMIN B12 [Concomitant]
     Active Substance: CYANOCOBALAMIN
  10. METHOTREXATE [Concomitant]
     Active Substance: METHOTREXATE
  11. PREDNISOLONE [Concomitant]
     Active Substance: PREDNISOLONE
  12. FOLIC ACID [Concomitant]
     Active Substance: FOLIC ACID
  13. CHOLECALCIFEROL [Concomitant]
     Active Substance: CHOLECALCIFEROL
  14. CHOLECALCIFEROL [Concomitant]
     Active Substance: CHOLECALCIFEROL
  15. IRON [Concomitant]
     Active Substance: IRON
  16. COTRIM [Concomitant]
     Active Substance: SULFAMETHOXAZOLE\TRIMETHOPRIM

REACTIONS (3)
  - Ureterolithiasis [Unknown]
  - Cholecystitis acute [Recovering/Resolving]
  - Acquired claw toe [Recovering/Resolving]

NARRATIVE: CASE EVENT DATE: 20190915
